FAERS Safety Report 6524044-9 (Version None)
Quarter: 2009Q4

REPORT INFORMATION
  Report Type: 
  Country: None (occurrence: None)
  Receive Date: 20091231
  Receipt Date: 20091222
  Transmission Date: 20100525
  Serious: Yes (Hospitalization, Other)
  Sender: FDA-Public Use
  Company Number: PHHY2009PL55773

PATIENT
  Sex: Male
  Weight: 59 kg

DRUGS (3)
  1. MYFORTIC [Suspect]
     Indication: RENAL TRANSPLANT
     Dosage: 720 MG, BID
     Route: 048
     Dates: start: 20090529
  2. TACROLIMUS [Concomitant]
     Indication: RENAL TRANSPLANT
     Dosage: 12 MG /24H
     Dates: start: 20090529
  3. ENCORTON [Concomitant]
     Indication: RENAL TRANSPLANT
     Dosage: 15 MG/24H
     Dates: start: 20090706

REACTIONS (14)
  - BLOOD CREATININE INCREASED [None]
  - CYTOMEGALOVIRUS INFECTION [None]
  - DIABETES MELLITUS [None]
  - DIARRHOEA [None]
  - DYSPEPSIA [None]
  - IMMUNOSUPPRESSANT DRUG LEVEL INCREASED [None]
  - MYOCARDIAL ISCHAEMIA [None]
  - NAUSEA [None]
  - NEPHROPATHY TOXIC [None]
  - NEPHROTIC SYNDROME [None]
  - RENAL IMPAIRMENT [None]
  - SYNCOPE [None]
  - VENTRICULAR TACHYCARDIA [None]
  - VOMITING [None]
